FAERS Safety Report 12211268 (Version 2)
Quarter: 2016Q2

REPORT INFORMATION
  Report Type: Spontaneous
  Country: FR (occurrence: FR)
  Receive Date: 20160325
  Receipt Date: 20160422
  Transmission Date: 20160815
  Serious: Yes (Life-Threatening)
  Sender: FDA-Public Use
  Company Number: FR-ASTRAZENECA-2016SE31192

PATIENT
  Age: 18476 Day
  Sex: Male
  Weight: 73 kg

DRUGS (15)
  1. VINCRISTINE [Concomitant]
     Active Substance: VINCRISTINE
     Indication: DIFFUSE LARGE B-CELL LYMPHOMA STAGE IV
     Route: 042
     Dates: start: 20160218, end: 20160218
  2. ZELITREX [Interacting]
     Active Substance: VALACYCLOVIR HYDROCHLORIDE
     Route: 048
     Dates: end: 20160219
  3. STILNOX [Concomitant]
     Active Substance: ZOLPIDEM TARTRATE
     Dosage: IF NEEDED
  4. UROMITEXAN [Concomitant]
     Active Substance: MESNA
     Indication: PROPHYLAXIS
     Route: 042
     Dates: start: 20160219, end: 20160219
  5. METHYLPREDNISOLONE. [Concomitant]
     Active Substance: METHYLPREDNISOLONE
     Indication: DIFFUSE LARGE B-CELL LYMPHOMA STAGE IV
     Route: 042
     Dates: start: 20160218, end: 20160221
  6. ENDOXAN [Concomitant]
     Active Substance: CYCLOPHOSPHAMIDE
     Indication: DIFFUSE LARGE B-CELL LYMPHOMA STAGE IV
     Route: 042
     Dates: start: 20160219, end: 20160219
  7. INEXIUM [Suspect]
     Active Substance: ESOMEPRAZOLE
     Route: 048
     Dates: start: 20160217, end: 20160226
  8. EMEND [Concomitant]
     Active Substance: APREPITANT
     Route: 048
     Dates: start: 20160215, end: 20160218
  9. METHOTREXATE [Interacting]
     Active Substance: METHOTREXATE
     Indication: DIFFUSE LARGE B-CELL LYMPHOMA STAGE IV
     Route: 042
     Dates: start: 20160218, end: 20160218
  10. DOXORUBICIN [Concomitant]
     Active Substance: DOXORUBICIN
     Indication: DIFFUSE LARGE B-CELL LYMPHOMA STAGE IV
     Route: 042
     Dates: start: 20160219, end: 20160219
  11. ALLOPURINOL. [Concomitant]
     Active Substance: ALLOPURINOL
  12. ONDANSETRON [Concomitant]
     Active Substance: ONDANSETRON
     Route: 042
     Dates: start: 20160218, end: 20160220
  13. CALCIUM LEVOFOLINATE [Concomitant]
     Active Substance: LEVOLEUCOVORIN CALCIUM
     Indication: DIFFUSE LARGE B-CELL LYMPHOMA STAGE IV
     Route: 042
     Dates: start: 20160219, end: 20160221
  14. EMEND [Concomitant]
     Active Substance: APREPITANT
     Dates: start: 20160219, end: 20160220
  15. XANAX [Concomitant]
     Active Substance: ALPRAZOLAM

REACTIONS (10)
  - Drug interaction [Unknown]
  - Bone marrow failure [Recovered/Resolved]
  - Toxic skin eruption [Recovering/Resolving]
  - Overdose [Recovered/Resolved]
  - Mucosal inflammation [Recovering/Resolving]
  - Confusional state [Recovered/Resolved]
  - Blood bilirubin increased [Recovered/Resolved]
  - Prothrombin time shortened [Recovered/Resolved]
  - Blood albumin decreased [Not Recovered/Not Resolved]
  - Renal impairment [Recovered/Resolved]

NARRATIVE: CASE EVENT DATE: 201602
